FAERS Safety Report 26173057 (Version 1)
Quarter: 2025Q4

REPORT INFORMATION
  Report Type: Report from Study
  Country: CO (occurrence: CO)
  Receive Date: 20251218
  Receipt Date: 20251218
  Transmission Date: 20260117
  Serious: Yes (Other)
  Sender: ASTELLAS
  Company Number: CO-ASTELLAS-2025-AER-069366

PATIENT
  Age: 30 Year
  Sex: Male
  Weight: 68 kg

DRUGS (2)
  1. TACROLIMUS [Suspect]
     Active Substance: TACROLIMUS
     Indication: Renal transplant
     Dosage: 1MG (2 CAPSULES) AND 5MG (2 CAPSULES), A DAILY DOSE OF 12MG, EVERY 24 HOURS.
     Route: 048
  2. TACROLIMUS [Suspect]
     Active Substance: TACROLIMUS
     Indication: Renal transplant
     Dosage: 1MG (2 CAPSULES) AND 5MG (2 CAPSULES), A DAILY DOSE OF 12MG, EVERY 24 HOURS.
     Route: 048

REACTIONS (1)
  - Secondary immunodeficiency [Not Recovered/Not Resolved]

NARRATIVE: CASE EVENT DATE: 20251101
